FAERS Safety Report 9824787 (Version 2)
Quarter: 2014Q1

REPORT INFORMATION
  Report Type: Spontaneous
  Country: US (occurrence: US)
  Receive Date: 20140115
  Receipt Date: 20140115
  Transmission Date: 20141002
  Serious: Yes (Other)
  Sender: FDA-Public Use
  Company Number: US-B.I. PHARMACEUTICALS,INC./RIDGEFIELD-2013-BI-22871BP

PATIENT
  Sex: Female
  Weight: 52.16 kg

DRUGS (2)
  1. PRADAXA [Suspect]
     Dosage: 300 MG
     Route: 048
     Dates: start: 20110811, end: 20120317
  2. ASPIRIN [Concomitant]

REACTIONS (2)
  - Anaemia [Unknown]
  - Haemorrhage [Unknown]
